FAERS Safety Report 5717109-2 (Version None)
Quarter: 2008Q2

REPORT INFORMATION
  Report Type: 
  Country: None (occurrence: None)
  Receive Date: 20080424
  Receipt Date: 20080416
  Transmission Date: 20081010
  Serious: Yes (Death, Hospitalization)
  Sender: FDA-Public Use
  Company Number: GB-PFIZER INC-2008029330

PATIENT
  Age: 81 Year
  Sex: Female

DRUGS (7)
  1. PREDNISOLONE [Suspect]
  2. PREDNISOLONE [Suspect]
     Dosage: DAILY DOSE:30MG
  3. AZATHIOPRINE [Suspect]
     Dosage: DAILY DOSE:50MG
  4. BENZYLPENICILLIN [Concomitant]
  5. CIPROFLOXACIN [Concomitant]
  6. GENTAMICIN [Concomitant]
  7. TEICOPLANIN [Concomitant]

REACTIONS (1)
  - PNEUMOCYSTIS JIROVECI PNEUMONIA [None]
